FAERS Safety Report 21156178 (Version 1)
Quarter: 2022Q3

REPORT INFORMATION
  Report Type: Spontaneous
  Country: US (occurrence: None)
  Receive Date: 20220801
  Receipt Date: 20220801
  Transmission Date: 20221026
  Serious: No
  Sender: FDA-Public Use
  Company Number: 2022A264124

PATIENT
  Age: 53 Year
  Sex: Female

DRUGS (1)
  1. FARXIGA [Suspect]
     Active Substance: DAPAGLIFLOZIN PROPANEDIOL
     Route: 048
     Dates: start: 202205

REACTIONS (3)
  - Palpitations [Recovered/Resolved]
  - Extrasystoles [Recovered/Resolved]
  - Dizziness [Recovered/Resolved]
